FAERS Safety Report 8289897-5 (Version None)
Quarter: 2012Q2

REPORT INFORMATION
  Report Type: 
  Country: None (occurrence: None)
  Receive Date: 20120417
  Receipt Date: 20120413
  Transmission Date: 20120825
  Serious: No
  Sender: FDA-Public Use
  Company Number: US-B.I. PHARMACEUTICALS,INC./RIDGEFIELD-2012-BP-07109BP

PATIENT
  Sex: Female

DRUGS (1)
  1. TRADJENTA [Suspect]
     Dosage: 5 MG

REACTIONS (1)
  - WEIGHT INCREASED [None]
